FAERS Safety Report 7309051-0 (Version None)
Quarter: 2011Q1

REPORT INFORMATION
  Report Type: 
  Country: None (occurrence: None)
  Receive Date: 20110223
  Receipt Date: 20110216
  Transmission Date: 20110831
  Serious: Yes (Hospitalization)
  Sender: FDA-Public Use
  Company Number: DE-PFIZER INC-2011034346

PATIENT
  Age: 61 Year
  Sex: Male
  Weight: 70 kg

DRUGS (6)
  1. FERRIC HYDROXIDE [Concomitant]
     Dosage: UNK
     Dates: start: 20101008, end: 20101222
  2. LYRICA [Suspect]
     Indication: NEURALGIA
     Dosage: 350 MG, DAILY
     Route: 048
     Dates: start: 20050301, end: 20101222
  3. ARANESP [Concomitant]
     Dosage: UNK
     Dates: start: 20100913, end: 20101222
  4. ZOMETA [Suspect]
     Indication: METASTASES TO BONE
     Dosage: 3.3 MG, UNK
     Route: 042
     Dates: start: 20101210, end: 20101222
  5. EVEROLIMUS [Suspect]
     Indication: RENAL CELL CARCINOMA
     Dosage: 10 MG, 1X/DAY
     Route: 048
     Dates: start: 20100215
  6. CELEBREX [Concomitant]
     Dosage: UNK
     Dates: start: 20100801, end: 20101222

REACTIONS (3)
  - HYPERKALAEMIA [None]
  - RENAL FAILURE ACUTE [None]
  - HYPOCALCAEMIA [None]
